FAERS Safety Report 14200300 (Version 1)
Quarter: 2017Q4

REPORT INFORMATION
  Report Type: Spontaneous
  Country: US (occurrence: US)
  Receive Date: 20171117
  Receipt Date: 20171117
  Transmission Date: 20180321
  Serious: No
  Sender: FDA-Public Use
  Company Number: PHEH2017US036276

PATIENT
  Sex: Male

DRUGS (1)
  1. RITALIN [Suspect]
     Active Substance: METHYLPHENIDATE HYDROCHLORIDE
     Indication: HEAD INJURY
     Dosage: UNK
     Route: 065

REACTIONS (4)
  - Oxygen consumption decreased [Unknown]
  - Insomnia [Unknown]
  - Dyspnoea [Unknown]
  - Product use in unapproved indication [Unknown]
